FAERS Safety Report 7199085-1 (Version None)
Quarter: 2010Q4

REPORT INFORMATION
  Report Type: 
  Country: None (occurrence: None)
  Receive Date: 20101126
  Receipt Date: 20100604
  Transmission Date: 20110411
  Serious: Yes (Other)
  Sender: FDA-Public Use
  Company Number: WWISSUE-444

PATIENT
  Sex: Female

DRUGS (2)
  1. DOXYCYCLINE HYCLATE [Suspect]
     Dosage: 50MG, ORAL
     Route: 048
     Dates: start: 20100601
  2. DOXYCYCLINE HYCLATE CAPSULES USP, 50MG/WEST-WARD [Concomitant]

REACTIONS (1)
  - THROAT IRRITATION [None]
